FAERS Safety Report 15944175 (Version 1)
Quarter: 2019Q1

REPORT INFORMATION
  Report Type: Report from Study
  Country: None (occurrence: CA)
  Receive Date: 20190211
  Receipt Date: 20190211
  Transmission Date: 20190417
  Serious: Yes (Hospitalization, Other)
  Sender: FDA-Public Use
  Company Number: CA-ABBVIE-19K-028-2655358-00

PATIENT
  Age: 63 Year
  Sex: Male

DRUGS (1)
  1. HUMIRA [Suspect]
     Active Substance: ADALIMUMAB
     Indication: PSORIASIS
     Route: 058
     Dates: start: 20160114, end: 20190127

REACTIONS (3)
  - Synovial cyst [Unknown]
  - Psoriasis [Not Recovered/Not Resolved]
  - Prostatectomy [Not Recovered/Not Resolved]

NARRATIVE: CASE EVENT DATE: 20190128
